FAERS Safety Report 24341500 (Version 1)
Quarter: 2024Q3

REPORT INFORMATION
  Report Type: Spontaneous
  Country: US (occurrence: US)
  Receive Date: 20240920
  Receipt Date: 20240920
  Transmission Date: 20241017
  Serious: Yes (Hospitalization, Disabling, Other)
  Sender: NOVO NORDISK
  Company Number: US-NOVOPROD-1267738

PATIENT
  Age: 67 Year
  Sex: Female
  Weight: 107.94 kg

DRUGS (5)
  1. NOVOLIN 70/30 [Suspect]
     Active Substance: INSULIN HUMAN
     Dosage: 72 UNITS IN THE MORNING 62 UNITS IN THE EVENING
     Route: 058
     Dates: start: 2016
  2. NOVOLIN 70/30 [Suspect]
     Active Substance: INSULIN HUMAN
     Indication: Type 1 diabetes mellitus
     Dosage: 72 UNITS IN THE MORNING 62 UNITS IN THE EVENING
     Route: 058
     Dates: start: 2014
  3. METFORMIN [Concomitant]
     Active Substance: METFORMIN HYDROCHLORIDE
     Indication: Diabetes mellitus
     Dosage: UNK
  4. LISINOPRIL [Concomitant]
     Active Substance: LISINOPRIL
     Indication: Renal disorder
  5. LISINOPRIL [Concomitant]
     Active Substance: LISINOPRIL
     Indication: Liver disorder
     Dosage: UNK

REACTIONS (9)
  - Road traffic accident [Unknown]
  - Diabetic coma [Unknown]
  - Disability [Unknown]
  - Visual field defect [Unknown]
  - Blindness [Unknown]
  - Eye haemorrhage [Unknown]
  - Organ failure [Unknown]
  - Weight decreased [Unknown]
  - Depression [Unknown]

NARRATIVE: CASE EVENT DATE: 20140101
